FAERS Safety Report 20889547 (Version 1)
Quarter: 2022Q2

REPORT INFORMATION
  Report Type: Report from Study
  Country: US (occurrence: US)
  Receive Date: 20220530
  Receipt Date: 20220530
  Transmission Date: 20220721
  Serious: Yes (Hospitalization)
  Sender: FDA-Public Use
  Company Number: US-ABBVIE-22K-163-4383913-00

PATIENT
  Age: 61 Year
  Sex: Female
  Weight: 63 kg

DRUGS (33)
  1. VENCLEXTA [Suspect]
     Active Substance: VENETOCLAX
     Indication: Myelodysplastic syndrome
     Dosage: DO NOT CRUSH, CHEW, OR SPLIT. SWALLOW WHOLE
     Route: 048
     Dates: start: 20220422
  2. VENCLEXTA [Suspect]
     Active Substance: VENETOCLAX
     Indication: Acute myeloid leukaemia
  3. ZOVIRAX [Concomitant]
     Active Substance: ACYCLOVIR
     Indication: Product used for unknown indication
     Dosage: TAKE 1 TABLET BY MOUTH EVERY 12 HOURS
     Route: 048
  4. XANAX [Concomitant]
     Active Substance: ALPRAZOLAM
     Indication: Anxiety
     Dosage: TAKE 1 TABLET EVERY 8 HOURS AS NEEDED FOR ANXIETY
     Route: 048
  5. MEPRON [Concomitant]
     Active Substance: ATOVAQUONE
     Indication: Product used for unknown indication
     Dosage: SUSPENSION 750MG/5ML, EVERY 12 HOURS
     Route: 048
  6. WELLBUTRIN XL [Concomitant]
     Active Substance: BUPROPION HYDROCHLORIDE
     Indication: Product used for unknown indication
     Dosage: ER
     Route: 048
  7. FIORICET [Concomitant]
     Active Substance: ACETAMINOPHEN\BUTALBITAL\CAFFEINE
     Indication: Product used for unknown indication
     Dosage: 50-300-40MG, TAKE 2 CAPSULE EVERY 6 HOURS AS NEEDED FOR PAIN
     Route: 048
  8. VITAMIN B12 [Concomitant]
     Active Substance: CYANOCOBALAMIN
     Indication: Product used for unknown indication
     Dosage: MONTHLY
     Route: 048
  9. COLACE [Concomitant]
     Active Substance: DOCUSATE SODIUM
     Indication: Product used for unknown indication
     Route: 048
  10. LOVENOX [Concomitant]
     Active Substance: ENOXAPARIN SODIUM
     Indication: Product used for unknown indication
     Dosage: 60MG/0.6ML, EVERY 12 HOURS
     Route: 058
  11. FLORINEF ACETATE [Concomitant]
     Active Substance: FLUDROCORTISONE ACETATE
     Indication: Product used for unknown indication
     Dosage: TAKE 1 TABLET EVERY OTHER DAY
     Route: 048
  12. PROZAC [Concomitant]
     Active Substance: FLUOXETINE HYDROCHLORIDE
     Indication: Product used for unknown indication
     Dosage: 20 MG
     Route: 048
  13. PROCTOSOL HC [Concomitant]
     Indication: Product used for unknown indication
     Dosage: INSERT INTO THE RECTUM 2 TIMES A DAY
     Route: 054
  14. DILAUDID [Concomitant]
     Active Substance: HYDROMORPHONE HYDROCHLORIDE
     Indication: Product used for unknown indication
     Dosage: EVERY 4 HOURS AS NEEDED FOR MODERATE PAIN
     Route: 048
  15. CRESEMBA [Concomitant]
     Active Substance: ISAVUCONAZONIUM SULFATE
     Indication: Product used for unknown indication
     Route: 048
  16. KEPPRA [Concomitant]
     Active Substance: LEVETIRACETAM
     Indication: Product used for unknown indication
     Route: 048
  17. LEVAQUIN [Concomitant]
     Active Substance: LEVOFLOXACIN
     Indication: Product used for unknown indication
     Route: 048
  18. SYNTHROID [Concomitant]
     Active Substance: LEVOTHYROXINE SODIUM
     Indication: Product used for unknown indication
     Route: 048
  19. EMLA [Concomitant]
     Active Substance: LIDOCAINE\PRILOCAINE
     Indication: Product used for unknown indication
     Dosage: 2.5-2.5%, APPLY TO THE PORT 1 HOUR BEFORE ACCESS
     Route: 061
  20. SYMPROIC [Concomitant]
     Active Substance: NALDEMEDINE
     Indication: Product used for unknown indication
     Dosage: TAKE 0.2MG BY MOUTH DAILY AS NEEDED.OPIOID INDUCED CONSTIPATION
     Route: 048
  21. NARCAN [Concomitant]
     Active Substance: NALOXONE HYDROCHLORIDE
     Indication: Product used for unknown indication
     Dosage: LIQUID,AS NEEDED. GIVE 1SPRAY IN 1NOSTRIL MAY GIVE 2DOSE IN 3MIN IF NEEDED.
     Route: 045
  22. MACROBID [Concomitant]
     Active Substance: NITROFURANTOIN\NITROFURANTOIN MONOHYDRATE
     Indication: Product used for unknown indication
     Route: 048
     Dates: end: 20220320
  23. ZOFRAN [Concomitant]
     Active Substance: ONDANSETRON HYDROCHLORIDE
     Indication: Product used for unknown indication
     Dosage: TAKE 2 TABLETS EVERY 8 HOURS AS NEEDED FOR NAUSEA OR VOMITING
     Route: 048
  24. OXYCONTIN [Concomitant]
     Active Substance: OXYCODONE HYDROCHLORIDE
     Indication: Product used for unknown indication
     Dosage: ABUSE-DETERRENT TABLET,TAKE 1TABLET EVERY 8HOURS.DON^T CRUSH,CHEW OR SPLIT SWALLOW WHOLE
     Route: 048
  25. PROTONIX [Concomitant]
     Active Substance: PANTOPRAZOLE SODIUM
     Indication: Product used for unknown indication
     Dosage: EC DO NOT CRUSH OR CHEW OR SPIT. SWALLOW WHOLE
     Route: 048
  26. PYRIDIUM [Concomitant]
     Active Substance: PHENAZOPYRIDINE
     Indication: Product used for unknown indication
     Route: 048
  27. MICRO-K [Concomitant]
     Active Substance: POTASSIUM CHLORIDE
     Indication: Product used for unknown indication
     Dosage: 8 MEQ CR
     Route: 048
  28. POTASSIUM PHOSPHATE, MONOBASIC [Concomitant]
     Active Substance: POTASSIUM PHOSPHATE, MONOBASIC
     Indication: Product used for unknown indication
     Dosage: AS NEEDED (IF PHOS LEVEL LOW FOLLOW UP WITH LABS)
     Route: 048
  29. LYRICA [Concomitant]
     Active Substance: PREGABALIN
     Indication: Product used for unknown indication
     Route: 048
  30. MAXALT-MLT [Concomitant]
     Active Substance: RIZATRIPTAN BENZOATE
     Indication: Product used for unknown indication
     Dosage: AS NEEDED FOR MIGRAINE FOR UPTO 1 DOSE. MAY REPEAT IN 2 HOURS IF NEEDED.
     Route: 048
  31. SENOKOT [Concomitant]
     Active Substance: SENNOSIDES
     Indication: Product used for unknown indication
     Dosage: AT NIGHT
     Route: 048
  32. ZOCOR [Concomitant]
     Active Substance: SIMVASTATIN
     Indication: Product used for unknown indication
     Dosage: BEDTIME
     Route: 048
  33. AMBIEN [Concomitant]
     Active Substance: ZOLPIDEM TARTRATE
     Indication: Product used for unknown indication
     Dosage: NIGHTLY AS NEEDED FOR SLEEP
     Route: 048

REACTIONS (3)
  - Condition aggravated [Unknown]
  - Intentional product use issue [Unknown]
  - Off label use [Unknown]

NARRATIVE: CASE EVENT DATE: 20220401
